FAERS Safety Report 20699043 (Version 3)
Quarter: 2022Q2

REPORT INFORMATION
  Report Type: Spontaneous
  Country: CN (occurrence: CN)
  Receive Date: 20220412
  Receipt Date: 20220512
  Transmission Date: 20220720
  Serious: Yes (Hospitalization)
  Sender: FDA-Public Use
  Company Number: CN-NOVARTISPH-NVSC2022CN075531

PATIENT
  Sex: Male

DRUGS (1)
  1. COSENTYX [Suspect]
     Active Substance: SECUKINUMAB
     Indication: Product used for unknown indication
     Dosage: UNK, UNKNOWN
     Route: 065

REACTIONS (6)
  - Dermatitis exfoliative generalised [Unknown]
  - Erythema [Unknown]
  - Swelling [Unknown]
  - Pustule [Unknown]
  - Pruritus [Unknown]
  - Eye swelling [Unknown]
